FAERS Safety Report 5203508-4 (Version None)
Quarter: 2007Q1

REPORT INFORMATION
  Report Type: 
  Country: None (occurrence: None)
  Receive Date: 20070110
  Receipt Date: 20070105
  Transmission Date: 20070707
  Serious: Yes (Other)
  Sender: FDA-Public Use
  Company Number: 2007AP00334

PATIENT
  Age: 38 Year
  Sex: Female

DRUGS (3)
  1. OMEPRAL [Suspect]
     Indication: REFLUX OESOPHAGITIS
     Route: 048
     Dates: start: 20050101
  2. LOXONIN [Suspect]
     Route: 048
     Dates: start: 20050101
  3. AZULFIDINE EN-TABS [Suspect]
     Route: 048
     Dates: start: 20050101

REACTIONS (1)
  - HYPOAESTHESIA [None]
